FAERS Safety Report 25623993 (Version 2)
Quarter: 2025Q3

REPORT INFORMATION
  Report Type: Spontaneous
  Country: US (occurrence: US)
  Receive Date: 20250730
  Receipt Date: 20250922
  Transmission Date: 20251020
  Serious: No
  Sender: SANOFI AVENTIS
  Company Number: US-SA-2025SA219128

PATIENT
  Age: 60 Year
  Sex: Female
  Weight: 93.89 kg

DRUGS (2)
  1. DUPIXENT [Suspect]
     Active Substance: DUPILUMAB
     Indication: Nasal polyps
     Dosage: 300 MG, QOW
     Route: 058
  2. ATORVASTATIN [Concomitant]
     Active Substance: ATORVASTATIN

REACTIONS (11)
  - Pain [Unknown]
  - Tremor [Unknown]
  - Influenza like illness [Unknown]
  - Facial pain [Unknown]
  - Neck pain [Unknown]
  - Nausea [Unknown]
  - Dizziness [Unknown]
  - Nasopharyngitis [Unknown]
  - Headache [Unknown]
  - Laryngitis viral [Unknown]
  - Arthralgia [Unknown]

NARRATIVE: CASE EVENT DATE: 20250723
